FAERS Safety Report 4465683-9 (Version None)
Quarter: 2004Q4

REPORT INFORMATION
  Report Type: 
  Country: None (occurrence: None)
  Receive Date: 20041004
  Receipt Date: 20040625
  Transmission Date: 20050328
  Serious: Yes (Hospitalization, Other)
  Sender: FDA-Public Use
  Company Number: US-MERCK-0406USA02542

PATIENT
  Age: 75 Year
  Sex: Female
  Weight: 80 kg

DRUGS (3)
  1. TOPROL-XL [Concomitant]
     Route: 048
  2. NITROPASTE [Concomitant]
     Route: 065
  3. ZOCOR [Suspect]
     Indication: CORONARY ARTERY ATHEROSCLEROSIS
     Route: 048
     Dates: start: 19970115, end: 19970213

REACTIONS (2)
  - HEPATITIS [None]
  - MYOCARDIAL INFARCTION [None]
